FAERS Safety Report 5468925-6 (Version None)
Quarter: 2007Q3

REPORT INFORMATION
  Report Type: 
  Country: None (occurrence: None)
  Receive Date: 20070926
  Receipt Date: 20070913
  Transmission Date: 20080115
  Serious: Yes (Death, Hospitalization)
  Sender: FDA-Public Use
  Company Number: GB-MERCK-0704GBR00037

PATIENT
  Age: 6 Year
  Sex: Female

DRUGS (11)
  1. DEXAMETHASONE [Concomitant]
     Route: 048
  2. PRIMAXIN [Suspect]
     Route: 042
  3. VINCRISTINE SULFATE [Concomitant]
     Route: 065
  4. DACTINOMYCIN [Concomitant]
     Route: 065
  5. CARBOPLATIN [Concomitant]
     Route: 065
  6. EPIRUBICIN HYDROCHLORIDE [Concomitant]
     Route: 065
  7. ETOPOSIDE [Concomitant]
     Route: 065
  8. IFOSFAMIDE [Concomitant]
     Route: 065
  9. AMPHOTERICIN B [Concomitant]
     Route: 065
  10. FLUCYTOSINE [Concomitant]
     Route: 065
  11. CORTICOSTEROIDS (UNSPECIFIED) [Concomitant]
     Route: 065

REACTIONS (1)
  - PNEUMONITIS [None]
